FAERS Safety Report 19670115 (Version 1)
Quarter: 2021Q3

REPORT INFORMATION
  Report Type: Report from Study
  Country: US (occurrence: US)
  Receive Date: 20210806
  Receipt Date: 20210806
  Transmission Date: 20211014
  Serious: Yes (Hospitalization)
  Sender: FDA-Public Use
  Company Number: US-EISAI MEDICAL RESEARCH-EC-2021-097311

PATIENT
  Age: 77 Year
  Sex: Female
  Weight: 57.15 kg

DRUGS (23)
  1. LENVIMA [Suspect]
     Active Substance: LENVATINIB
     Indication: UTERINE CANCER
     Route: 048
     Dates: start: 20191127
  2. VITAMIN D [Concomitant]
     Active Substance: VITAMIN D NOS
  3. DEXAMETHASONE. [Concomitant]
     Active Substance: DEXAMETHASONE
  4. VITAMIN B12 [Concomitant]
     Active Substance: CYANOCOBALAMIN
  5. LOSARTAN. [Concomitant]
     Active Substance: LOSARTAN
  6. EXEMESTANE. [Concomitant]
     Active Substance: EXEMESTANE
  7. HCTZ [Concomitant]
     Active Substance: HYDROCHLOROTHIAZIDE
  8. PERCOCET [Concomitant]
     Active Substance: ACETAMINOPHEN\OXYCODONE HYDROCHLORIDE
  9. CALCIUM [Concomitant]
     Active Substance: CALCIUM
  10. PRENATAL [Concomitant]
     Active Substance: VITAMINS
  11. FAMOTIDINE. [Concomitant]
     Active Substance: FAMOTIDINE
  12. LENVIMA [Suspect]
     Active Substance: LENVATINIB
     Indication: ENDOMETRIAL CANCER METASTATIC
     Route: 048
     Dates: start: 20191001, end: 201911
  13. LENVIMA [Suspect]
     Active Substance: LENVATINIB
     Indication: METASTASES TO LUNG
     Route: 048
     Dates: start: 202001
  14. LEVOTHYROXINE. [Concomitant]
     Active Substance: LEVOTHYROXINE
  15. KEYTRUDA [Concomitant]
     Active Substance: PEMBROLIZUMAB
  16. MAGNESIUM [Concomitant]
     Active Substance: MAGNESIUM
  17. FENOFIBRATE. [Concomitant]
     Active Substance: FENOFIBRATE
  18. METOPROLOL. [Concomitant]
     Active Substance: METOPROLOL
     Indication: BLOOD PRESSURE ABNORMAL
     Dosage: DOSE AND FREQUENCY UNKNOWN.
     Route: 048
  19. ZYRTEC [Concomitant]
     Active Substance: CETIRIZINE HYDROCHLORIDE
  20. ATORVASTATIN [Concomitant]
     Active Substance: ATORVASTATIN
  21. BIOTIN [Concomitant]
     Active Substance: BIOTIN
  22. RHOGAM [Concomitant]
     Active Substance: HUMAN RHO(D) IMMUNE GLOBULIN
  23. CARVEDILOL. [Concomitant]
     Active Substance: CARVEDILOL

REACTIONS (18)
  - Depression [Unknown]
  - Asthenia [Unknown]
  - Weight decreased [Unknown]
  - Dehydration [Unknown]
  - Hypoaesthesia [Recovered/Resolved]
  - Cough [Recovered/Resolved]
  - Blood electrolytes decreased [Unknown]
  - Neck pain [Recovering/Resolving]
  - Gait disturbance [Unknown]
  - Blood pressure increased [Recovered/Resolved]
  - Oropharyngeal pain [Not Recovered/Not Resolved]
  - Oral pain [Not Recovered/Not Resolved]
  - Blood magnesium decreased [Unknown]
  - Amnesia [Unknown]
  - Visual impairment [Unknown]
  - Balance disorder [Unknown]
  - Decreased appetite [Recovering/Resolving]
  - Nausea [Unknown]

NARRATIVE: CASE EVENT DATE: 201911
